FAERS Safety Report 17538052 (Version 1)
Quarter: 2020Q1

REPORT INFORMATION
  Report Type: Spontaneous
  Country: JP (occurrence: JP)
  Receive Date: 20200313
  Receipt Date: 20200313
  Transmission Date: 20200409
  Serious: Yes (Other)
  Sender: FDA-Public Use
  Company Number: JP-JNJFOC-20200310136

PATIENT
  Age: 20 Year
  Sex: Male

DRUGS (1)
  1. TRABECTEDIN [Suspect]
     Active Substance: TRABECTEDIN
     Indication: UNDIFFERENTIATED SARCOMA
     Route: 041

REACTIONS (3)
  - Off label use [Unknown]
  - Pneumonia [Recovering/Resolving]
  - Inappropriate schedule of product administration [Unknown]
